FAERS Safety Report 6054503-7 (Version None)
Quarter: 2009Q1

REPORT INFORMATION
  Report Type: 
  Country: None (occurrence: None)
  Receive Date: 20090127
  Receipt Date: 20090114
  Transmission Date: 20090719
  Serious: Yes (Hospitalization, Other)
  Sender: FDA-Public Use
  Company Number: PHHY2009FR01733

PATIENT
  Sex: Male

DRUGS (7)
  1. AREDIA [Suspect]
     Indication: COMPLEX REGIONAL PAIN SYNDROME
     Dosage: 80 MG, PER DAY
     Route: 042
     Dates: start: 20081121, end: 20081122
  2. SINTROM [Suspect]
     Indication: ARRHYTHMIA
     Dosage: UNK
     Route: 048
  3. TRIATEC [Suspect]
     Indication: HYPERTENSION
     Dosage: 10 MG, QD
     Route: 048
  4. CARDENSIEL [Suspect]
     Indication: HYPERTENSION
     Dosage: 1.25 MG, QD
     Route: 048
  5. ZYLORIC ^FRESENIUS^ [Suspect]
     Indication: BLOOD URIC ACID INCREASED
     Dosage: 200 MG, QD
     Route: 048
  6. TOPALGIC ^HOUDE^ [Suspect]
     Dosage: 200 MG, QD
     Route: 048
     Dates: start: 20081101
  7. ACETAMINOPHEN [Suspect]
     Indication: HYPERTHERMIA
     Dosage: 1000 MG, QD
     Route: 048
     Dates: start: 20081121, end: 20081122

REACTIONS (4)
  - ACUTE CORONARY SYNDROME [None]
  - MYELOPROLIFERATIVE DISORDER [None]
  - PLATELET COUNT INCREASED [None]
  - SENSE OF OPPRESSION [None]
